FAERS Safety Report 16456094 (Version 3)
Quarter: 2019Q4

REPORT INFORMATION
  Report Type: Spontaneous
  Country: JP (occurrence: JP)
  Receive Date: 20190620
  Receipt Date: 20191120
  Transmission Date: 20200122
  Serious: Yes (Death, Hospitalization, Other)
  Sender: FDA-Public Use
  Company Number: JP-BRISTOL-MYERS SQUIBB COMPANY-BMS-2019-058300

PATIENT
  Age: 69 Year
  Sex: Male
  Weight: 54.4 kg

DRUGS (1)
  1. OPDIVO [Suspect]
     Active Substance: NIVOLUMAB
     Indication: GASTRIC CANCER
     Dosage: 240 MILLIGRAM, Q2WK
     Route: 041
     Dates: start: 20190426, end: 20190610

REACTIONS (10)
  - Abscess rupture [Fatal]
  - Cholangitis [Unknown]
  - Chest pain [Unknown]
  - Pancreatic neoplasm [Unknown]
  - Metastases to liver [Unknown]
  - Peritonitis [Fatal]
  - Liver abscess [Fatal]
  - Tumour necrosis [Unknown]
  - Hepatic failure [Unknown]
  - Tumour rupture [Unknown]

NARRATIVE: CASE EVENT DATE: 20190603
